FAERS Safety Report 6384131-5 (Version None)
Quarter: 2009Q3

REPORT INFORMATION
  Report Type: 
  Country: None (occurrence: None)
  Receive Date: 20090928
  Receipt Date: 20090916
  Transmission Date: 20100115
  Serious: Yes (Hospitalization)
  Sender: FDA-Public Use
  Company Number: F03200900107

PATIENT
  Age: 49 Year
  Sex: Male

DRUGS (5)
  1. OFORTA [Suspect]
     Indication: CHRONIC LYMPHOCYTIC LEUKAEMIA
     Dosage: 90 MG Q4W
     Route: 048
     Dates: start: 20090324, end: 20090828
  2. ALEMTUZUMAB [Suspect]
     Indication: CHRONIC LYMPHOCYTIC LEUKAEMIA
     Dosage: 30 MG Q4W
     Route: 058
     Dates: start: 20090324, end: 20090828
  3. VALACYCLOVIR HCL [Concomitant]
  4. COTRIM [Concomitant]
  5. FLUCONAZOLE [Concomitant]

REACTIONS (1)
  - PULMONARY EMBOLISM [None]
